FAERS Safety Report 6577684-5 (Version None)
Quarter: 2010Q1

REPORT INFORMATION
  Report Type: 
  Country: None (occurrence: None)
  Receive Date: 20100211
  Receipt Date: 20100205
  Transmission Date: 20100710
  Serious: Yes (Other)
  Sender: FDA-Public Use
  Company Number: PHEH2009US14061

PATIENT
  Age: 81 Year
  Sex: Female
  Weight: 52.154 kg

DRUGS (2)
  1. VOLTAREN [Suspect]
     Indication: BACK PAIN
     Dosage: UNK
     Route: 048
     Dates: start: 19980101, end: 19980101
  2. VOLTAREN [Suspect]
     Indication: INTERVERTEBRAL DISC PROTRUSION

REACTIONS (2)
  - ANAPHYLACTIC SHOCK [None]
  - RASH [None]
